FAERS Safety Report 10855567 (Version 1)
Quarter: 2015Q1

REPORT INFORMATION
  Report Type: Spontaneous
  Country: None (occurrence: None)
  Receive Date: 20150218
  Receipt Date: 20150218
  Transmission Date: 20150721
  Serious: Yes (Death, Hospitalization)
  Sender: FDA-Public Use
  Company Number: None

PATIENT
  Sex: Male
  Weight: 108.8 kg

DRUGS (3)
  1. BEVACIZUMAB (RHUMAB VEGF) [Suspect]
     Active Substance: BEVACIZUMAB
     Dates: end: 20111107
  2. CAMPTOSAR [Suspect]
     Active Substance: IRINOTECAN HYDROCHLORIDE
     Dates: end: 20111107
  3. ELOXATIN [Suspect]
     Active Substance: OXALIPLATIN
     Dates: end: 20111107

REACTIONS (11)
  - Nausea [None]
  - Neutropenia [None]
  - Metastases to liver [None]
  - Decreased appetite [None]
  - Dehydration [None]
  - Anaemia [None]
  - Thrombocytopenia [None]
  - Sepsis [None]
  - Small intestinal obstruction [None]
  - Hypotension [None]
  - Diarrhoea [None]

NARRATIVE: CASE EVENT DATE: 20111115
